FAERS Safety Report 5382731-2 (Version None)
Quarter: 2007Q3

REPORT INFORMATION
  Report Type: 
  Country: None (occurrence: None)
  Receive Date: 20070710
  Receipt Date: 20070704
  Transmission Date: 20080115
  Serious: Yes (Hospitalization, Other)
  Sender: FDA-Public Use
  Company Number: AU-AVENTIS-200714914GDDC

PATIENT
  Age: 68 Year
  Sex: Female

DRUGS (6)
  1. ARAVA [Suspect]
     Indication: RHEUMATOID ARTHRITIS
     Route: 048
     Dates: start: 20020101, end: 20061127
  2. ARAVA [Suspect]
     Route: 048
     Dates: start: 20061127, end: 20070419
  3. ARAVA [Suspect]
     Route: 048
     Dates: start: 20070419
  4. PARACETAMOL [Concomitant]
     Route: 048
  5. NEXIUM [Concomitant]
     Route: 048
  6. PREXIGE [Concomitant]
     Route: 048

REACTIONS (1)
  - SYNOVIAL CYST [None]
